FAERS Safety Report 8882060 (Version 2)
Quarter: 2012Q4

REPORT INFORMATION
  Report Type: 
  Country: US (occurrence: US)
  Receive Date: 20121102
  Receipt Date: 20121127
  Transmission Date: 20130627
  Serious: Yes (Other)
  Sender: FDA-Public Use
  Company Number: US-JNJFOC-20121014471

PATIENT
  Sex: Male

DRUGS (2)
  1. XARELTO [Suspect]
     Indication: CARDIAC DISORDER
     Route: 048
  2. XARELTO [Suspect]
     Indication: CARDIAC DISORDER
     Route: 048

REACTIONS (1)
  - Arthropathy [Recovered/Resolved]
